FAERS Safety Report 20724381 (Version 1)
Quarter: 2022Q2

REPORT INFORMATION
  Report Type: Spontaneous
  Country: GB (occurrence: GB)
  Receive Date: 20220419
  Receipt Date: 20220419
  Transmission Date: 20220721
  Serious: Yes (Other)
  Sender: FDA-Public Use
  Company Number: GB-MHRA-MED-202204062131584400-VYIAZ

PATIENT
  Age: 34 Year
  Sex: Female
  Weight: 85 kg

DRUGS (1)
  1. DOXYCYCLINE [Suspect]
     Active Substance: DOXYCYCLINE
     Indication: Lower respiratory tract infection
     Dosage: 100 MG
     Dates: start: 20220405, end: 20220406

REACTIONS (6)
  - Vomiting [Not Recovered/Not Resolved]
  - Headache [Recovering/Resolving]
  - Asthma [Recovered/Resolved]
  - Head discomfort [Recovering/Resolving]
  - Eye pain [Unknown]
  - Haematemesis [Unknown]

NARRATIVE: CASE EVENT DATE: 20220406
